FAERS Safety Report 7013435-8 (Version None)
Quarter: 2010Q3

REPORT INFORMATION
  Report Type: 
  Country: None (occurrence: None)
  Receive Date: 20100924
  Receipt Date: 20100913
  Transmission Date: 20110219
  Serious: Yes (Other)
  Sender: FDA-Public Use
  Company Number: US-PFIZER INC-2010115698

PATIENT
  Sex: Male

DRUGS (9)
  1. NEURONTIN [Suspect]
     Indication: NEURALGIA
     Dosage: UNK
     Route: 048
  2. TRAMADOL [Concomitant]
     Indication: PAIN IN EXTREMITY
     Dosage: 100MG WITH DINNER AND 50MG AT BEDTIME; 2X/DAY
  3. TRAMADOL [Concomitant]
     Indication: FIBROMYALGIA
  4. AVAPRO [Concomitant]
     Indication: HYPERTENSION
     Dosage: 75 MG, 1X/DAY
     Route: 048
  5. AMITRIPTYLINE HYDROCHLORIDE [Concomitant]
     Indication: DEPRESSION
     Dosage: 25 MG, 1X/DAY
     Route: 048
  6. AMITRIPTYLINE HYDROCHLORIDE [Concomitant]
     Indication: SLEEP DISORDER
  7. LEXAPRO [Concomitant]
     Indication: DEPRESSION
     Dosage: 10 MG, 1X/DAY
     Route: 048
  8. THYROID TAB [Concomitant]
     Indication: TRI-IODOTHYRONINE DECREASED
     Dosage: 30 MG, UNK
     Route: 048
  9. TESTOSTERONE [Concomitant]
     Indication: BLOOD TESTOSTERONE DECREASED
     Dosage: UNK; DAILY

REACTIONS (3)
  - DRUG INEFFECTIVE [None]
  - INSOMNIA [None]
  - VISION BLURRED [None]
